FAERS Safety Report 6757024-9 (Version None)
Quarter: 2010Q2

REPORT INFORMATION
  Report Type: 
  Country: None (occurrence: None)
  Receive Date: 20100604
  Receipt Date: 20100524
  Transmission Date: 20101027
  Serious: Yes (Hospitalization, Other)
  Sender: FDA-Public Use
  Company Number: US-ELI_LILLY_AND_COMPANY-US201004000667

PATIENT
  Age: 20 Year
  Sex: Female

DRUGS (3)
  1. STRATTERA [Suspect]
     Indication: ATTENTION DEFICIT/HYPERACTIVITY DISORDER
     Dosage: 10 MG, DAILY (1/D)
  2. STRATTERA [Suspect]
     Dosage: 25 MG, DAILY (1/D)
  3. STRATTERA [Suspect]
     Dosage: 40 MG, DAILY (1/D)

REACTIONS (2)
  - GASTROINTESTINAL TUBE INSERTION [None]
  - HOSPITALISATION [None]
